FAERS Safety Report 9778418 (Version 3)
Quarter: 2014Q1

REPORT INFORMATION
  Report Type: Report from Study
  Country: JP (occurrence: JP)
  Receive Date: 20131223
  Receipt Date: 20140320
  Transmission Date: 20141002
  Serious: Yes (Disabling, Other)
  Sender: FDA-Public Use
  Company Number: JP-NAPPMUNDI-GBR-2013-0016712

PATIENT
  Age: 56 Year
  Sex: Female

DRUGS (20)
  1. OXYCODONE HYDROCHLORIDE [Suspect]
     Indication: CANCER PAIN
     Dosage: 1.455 MG/HR
     Route: 042
     Dates: start: 20131114, end: 20131126
  2. OXYCODONE HYDROCHLORIDE [Suspect]
     Dosage: 1.456 MG/HR
     Dates: start: 20131114, end: 20131117
  3. OXYCODONE HYDROCHLORIDE [Suspect]
     Dosage: 1.456 MG/HR,
     Route: 042
     Dates: start: 20131113, end: 20131113
  4. OXYCODONE HYDROCHLORIDE [Suspect]
     Dosage: 1.04  MG/HR
     Route: 042
     Dates: start: 20131103, end: 20131112
  5. OXYCODONE HYDROCHLORIDE [Suspect]
     Dosage: 0.664 MG/HR,
     Dates: start: 20131101, end: 20131101
  6. OXYCODONE HYDROCHLORIDE [Suspect]
     Dosage: 0.83 MG/HR
     Route: 042
     Dates: start: 20131102, end: 20131102
  7. OXYCODONE HYDROCHLORIDE [Suspect]
     Dosage: 0.415 MG/HR
     Route: 042
     Dates: start: 20131030, end: 20131031
  8. OXYCODONE HYDROCHLORIDE [Suspect]
     Dosage: 0.415 MG/HR
     Dates: start: 20131029, end: 20131029
  9. OXYCODONE HYDROCHLORIDE [Suspect]
     Dosage: 0.415 MG/HR,
     Route: 042
     Dates: start: 20131029, end: 20131031
  10. AMINO ACIDS/CARBOHYDRATES/MINERALS/VITAMINS, [Suspect]
     Indication: BREAST CANCER
     Dosage: 1 UNK, DAILY
     Route: 065
     Dates: start: 20131031, end: 20131102
  11. AMINO ACIDS/CARBOHYDRATES/MINERALS/VITAMINS, [Suspect]
     Indication: METASTASES TO CENTRAL NERVOUS SYSTEM
  12. AMINO ACIDS/CARBOHYDRATES/MINERALS/VITAMINS, [Suspect]
     Indication: METASTASES TO MENINGES
  13. GLYCEOL                            /00744501/ [Concomitant]
     Indication: CANCER PAIN
     Dosage: 600 ML, DAILY
  14. DEXART [Concomitant]
     Indication: BREAST CANCER
     Dosage: 13.2 MG, DAILY
     Dates: start: 20131029
  15. DEXART [Concomitant]
     Indication: METASTASES TO CENTRAL NERVOUS SYSTEM
  16. DEXART [Concomitant]
     Indication: METASTASES TO MENINGES
  17. PHENOBAL                           /00023201/ [Concomitant]
     Indication: BREAST CANCER
     Dosage: 100 MG, DAILY
     Dates: start: 20131030
  18. PHENOBAL                           /00023201/ [Concomitant]
     Indication: METASTASES TO CENTRAL NERVOUS SYSTEM
  19. PHENOBAL                           /00023201/ [Concomitant]
     Indication: METASTASES TO MENINGES
  20. ZYPREXA [Concomitant]
     Indication: INSOMNIA
     Dosage: 5 MG, DAILY
     Dates: start: 20131101

REACTIONS (4)
  - Delirium [Recovered/Resolved]
  - Cerebral infarction [Recovering/Resolving]
  - Hepatic function abnormal [Recovering/Resolving]
  - Insomnia [Recovering/Resolving]
